FAERS Safety Report 9204066 (Version 1)
Quarter: 2013Q2

REPORT INFORMATION
  Report Type: Spontaneous
  Country: US (occurrence: US)
  Receive Date: 20130402
  Receipt Date: 20130402
  Transmission Date: 20140414
  Serious: Yes (Other)
  Sender: FDA-Public Use
  Company Number: US-AMGEN-USASP2013021420

PATIENT
  Age: 49 Year
  Sex: Female

DRUGS (2)
  1. ENBREL [Suspect]
     Indication: ANKYLOSING SPONDYLITIS
     Dosage: 25 MG, 2 TIMES/WK
     Dates: start: 2004
  2. ENBREL [Suspect]

REACTIONS (5)
  - Surgery [Unknown]
  - Post procedural complication [Not Recovered/Not Resolved]
  - Adverse drug reaction [Unknown]
  - Upper respiratory tract infection [Unknown]
  - Injection site urticaria [Not Recovered/Not Resolved]
